FAERS Safety Report 14864128 (Version 4)
Quarter: 2020Q3

REPORT INFORMATION
  Report Type: Spontaneous
  Country: DE (occurrence: DE)
  Receive Date: 20180508
  Receipt Date: 20180914
  Transmission Date: 20201105
  Serious: Yes (Death, Other)
  Sender: FDA-Public Use
  Company Number: DE-SA-200810558DE

PATIENT
  Age: 71 Year
  Sex: Female

DRUGS (78)
  1. CLOPIDOGREL BISULFATE. [Suspect]
     Active Substance: CLOPIDOGREL BISULFATE
     Indication: THROMBOSIS PROPHYLAXIS
     Dosage: 150 MG, QD (75 MG, BID)
     Route: 048
     Dates: start: 20041005, end: 20041107
  2. CARBAMAZEPINE. [Suspect]
     Active Substance: CARBAMAZEPINE
     Indication: AGITATION
     Dosage: UNK UNK,UNK
     Route: 048
     Dates: start: 20041101, end: 20041102
  3. METOPROLOL SUCCINATE. [Suspect]
     Active Substance: METOPROLOL SUCCINATE
     Indication: ACUTE MYOCARDIAL INFARCTION
     Dosage: 1 DF,TID
     Route: 048
     Dates: start: 20041012, end: 20041031
  4. PANTOPRAZOLE [Suspect]
     Active Substance: PANTOPRAZOLE
     Indication: GASTRIC ULCER
     Dosage: 40 MG,QD
     Route: 048
     Dates: start: 20041007, end: 20041031
  5. LENDORMIN [Suspect]
     Active Substance: BROTIZOLAM
     Indication: SLEEP DISORDER
     Dosage: .25 MG,QD
     Route: 048
     Dates: start: 20041015, end: 20041024
  6. HALOPERIDOL. [Suspect]
     Active Substance: HALOPERIDOL
     Indication: CONFUSIONAL STATE
     Dosage: 20 DF,BID
     Route: 048
     Dates: start: 20041104, end: 20041105
  7. FERROUS SULFATE. [Suspect]
     Active Substance: FERROUS SULFATE
     Indication: MINERAL SUPPLEMENTATION
     Dosage: 1 DF, QD
     Route: 048
     Dates: start: 20041103, end: 20041107
  8. GLUCOSE [Concomitant]
     Active Substance: DEXTROSE
     Dosage: UNK UNK,1X
     Route: 042
     Dates: start: 20041108, end: 20041108
  9. LOPERAMIDE [Suspect]
     Active Substance: LOPERAMIDE
     Indication: DIARRHOEA
     Dosage: 2 DF, QD
     Route: 048
     Dates: start: 20041031, end: 20041031
  10. INSULIN LISPRO [Suspect]
     Active Substance: INSULIN LISPRO
     Indication: DIABETES MELLITUS
     Dosage: DOSE AS USED: 24?24?26 IU
     Route: 058
     Dates: start: 20040729, end: 20041110
  11. SODIUM CHLORIDE. [Suspect]
     Active Substance: SODIUM CHLORIDE
     Indication: FLUID REPLACEMENT
     Dosage: 500 ML,QD
     Route: 042
     Dates: start: 20041024, end: 20041027
  12. KALINOR [POTASSIUM CHLORIDE] [Concomitant]
     Dosage: UNK UNK,QD
     Route: 048
     Dates: start: 20041023, end: 20041025
  13. KALINOR [POTASSIUM CHLORIDE] [Concomitant]
     Dosage: UNK UNK,QD
     Route: 048
     Dates: start: 20041102, end: 20041104
  14. PROTHAZIN [Concomitant]
     Indication: AGITATION
     Dosage: UNK UNK,BID
     Route: 042
     Dates: start: 20041105, end: 20041108
  15. PREDNISOLONE SODIUM SUCCINATE [Concomitant]
     Active Substance: PREDNISOLONE SODIUM SUCCINATE
     Indication: SWOLLEN TONGUE
     Dosage: DOSE AS USED: 1?1?0, 1?0?0, 1?0?1/2  DOSE UNIT: 100 MG
     Route: 042
     Dates: start: 20041105, end: 20041110
  16. TAVANIC [Concomitant]
     Active Substance: LEVOFLOXACIN
     Indication: PAROTITIS
     Dosage: 500 MG,QD
     Route: 042
     Dates: start: 20041107, end: 20041110
  17. FUROSEMIDE. [Suspect]
     Active Substance: FUROSEMIDE
     Indication: POLYURIA
     Dosage: 10 MG, QD
     Route: 048
     Dates: start: 20041101, end: 20041101
  18. METOCLOPRAMIDE HYDROCHLORIDE. [Suspect]
     Active Substance: METOCLOPRAMIDE HYDROCHLORIDE
     Indication: NAUSEA
     Dosage: 20 DF,5ID
     Route: 048
     Dates: start: 20041023, end: 20041023
  19. ATORVASTATIN CALCIUM. [Suspect]
     Active Substance: ATORVASTATIN CALCIUM
     Indication: HYPERCHOLESTEROLAEMIA
     Dosage: 40 MG,QD
     Route: 048
     Dates: start: 20040729, end: 20041102
  20. ROHYPNOL [Suspect]
     Active Substance: FLUNITRAZEPAM
     Indication: AGITATION
     Dosage: 1 MG,QD
     Route: 048
     Dates: start: 20041018, end: 20041018
  21. DEXTROSE. [Suspect]
     Active Substance: DEXTROSE
     Indication: HYPOGLYCAEMIA
     Dosage: UNK
     Route: 042
     Dates: start: 20041102, end: 20041102
  22. PIPAMPERONE [Suspect]
     Active Substance: PIPAMPERONE
     Indication: DISORIENTATION
     Dosage: 1 DF, QD
     Route: 048
     Dates: start: 20041103, end: 20041104
  23. FENISTIL [Concomitant]
     Active Substance: DIMETHINDENE
     Indication: PRURITUS
     Dosage: 1 MG,TID
     Route: 048
     Dates: start: 20041104, end: 20041107
  24. AMPICILLIN SODIUM. [Concomitant]
     Active Substance: AMPICILLIN SODIUM
     Indication: PAROTITIS
     Dosage: 1 G,TID
     Route: 042
     Dates: start: 20041106, end: 20041106
  25. PREDNICARBATE. [Concomitant]
     Active Substance: PREDNICARBATE
     Indication: SKIN DISORDER
     Dosage: UNK UNK,BID
     Route: 061
     Dates: start: 20041110, end: 20041110
  26. SIMVASTATIN. [Suspect]
     Active Substance: SIMVASTATIN
     Dosage: 1 DF,QD
     Route: 048
     Dates: start: 20041030, end: 20041030
  27. CLARITHROMYCIN. [Suspect]
     Active Substance: CLARITHROMYCIN
     Indication: PNEUMONIA
     Dosage: 250 MG,5ID
     Route: 048
     Dates: start: 20041018, end: 20041024
  28. POTASSIUM CHLORIDE. [Suspect]
     Active Substance: POTASSIUM CHLORIDE
     Dosage: 40 MMOL,QD
     Route: 042
     Dates: start: 20041102, end: 20041104
  29. IRENAT [Suspect]
     Active Substance: SODIUM PERCHLORATE
     Indication: HYPERTHYROIDISM
     Dosage: 20 DF,TID
     Route: 048
     Dates: start: 20041006, end: 20041105
  30. METAMIZOLE SODIUM [Concomitant]
     Active Substance: METAMIZOLE SODIUM
     Indication: PAIN
     Dosage: 20 DF,1X
     Route: 048
     Dates: start: 20041017, end: 20041017
  31. ALLOPURINOL. [Suspect]
     Active Substance: ALLOPURINOL
     Indication: HYPERURICAEMIA
     Dosage: 1 DF,QD
     Route: 048
     Dates: start: 20041024, end: 20041102
  32. CLOPIDOGREL BISULFATE. [Suspect]
     Active Substance: CLOPIDOGREL BISULFATE
     Indication: THROMBOSIS PROPHYLAXIS
     Dosage: 75 MG,QD
     Route: 048
     Dates: start: 20041005, end: 20041107
  33. SIMVASTATIN. [Suspect]
     Active Substance: SIMVASTATIN
     Indication: SLEEP DISORDER
     Dosage: 1 DF,QD
     Route: 048
     Dates: start: 20041014, end: 20041014
  34. POTASSIUM CHLORIDE. [Suspect]
     Active Substance: POTASSIUM CHLORIDE
     Indication: HYPOKALAEMIA
     Dosage: 40 MMOL,1X
     Route: 042
     Dates: start: 20041027, end: 20041027
  35. TORASEMIDE [Suspect]
     Active Substance: TORSEMIDE
     Indication: RENAL FAILURE
     Dosage: DOSE AS USED: 1?0?1, 2?0?2, 1?0?0
     Route: 048
     Dates: start: 20041012, end: 20041031
  36. DIGITOXIN [Suspect]
     Active Substance: DIGITOXIN
     Indication: CARDIAC FAILURE
     Dosage: DOSE AS USED: 0?1?0, 2?2?2, 1?0?0  DOSE UNIT: .07 MG
     Route: 048
     Dates: start: 20041014, end: 20041027
  37. LENDORMIN [Suspect]
     Active Substance: BROTIZOLAM
     Dosage: .25 MG,QD
     Route: 048
     Dates: start: 20041103, end: 20041103
  38. BELOC?ZOK COMP [Suspect]
     Active Substance: HYDROCHLOROTHIAZIDE\METOPROLOL SUCCINATE
     Indication: ACUTE MYOCARDIAL INFARCTION
     Dosage: UNK
     Route: 048
     Dates: start: 20041012, end: 20041031
  39. POTASSIUM CITRATE. [Suspect]
     Active Substance: POTASSIUM CITRATE
     Dosage: 1 DF, QD
     Route: 048
     Dates: start: 20041023, end: 20041025
  40. KALINOR [POTASSIUM CHLORIDE] [Concomitant]
     Indication: HYPOKALAEMIA
     Dosage: UNK UNK,QD
     Route: 048
     Dates: start: 20041015, end: 20041020
  41. KALINOR [POTASSIUM CHLORIDE] [Concomitant]
     Dosage: DOSE AS USED: 1?1?1, 1?1?2, 2?2?2
     Route: 048
     Dates: start: 20041101, end: 20041101
  42. CALCIUM ACETATE. [Concomitant]
     Active Substance: CALCIUM ACETATE
     Indication: FLUID REPLACEMENT
     Dosage: DOSE AS USED: 1000 ML ? 2000 ML
     Route: 042
     Dates: start: 20041102
  43. AMPHO?MORONAL [Concomitant]
     Active Substance: AMPHOTERICIN B
     Indication: ORAL CANDIDIASIS
     Dosage: 100 MG,TID
     Route: 061
     Dates: start: 20041106
  44. FUROSEMIDE. [Suspect]
     Active Substance: FUROSEMIDE
     Dosage: 40 MG, QD
     Route: 042
     Dates: start: 20041102, end: 20041111
  45. DIGITOXIN [Suspect]
     Active Substance: DIGITOXIN
     Dosage: DOSE AS USED: 0?1?0, 2?2?2, 1?0?0  DOSE UNIT: .07 MG
     Route: 048
     Dates: start: 20041103
  46. LENDORMIN [Suspect]
     Active Substance: BROTIZOLAM
     Dosage: .25 MG,QD
     Route: 048
     Dates: end: 20041110
  47. METHIMAZOLE. [Suspect]
     Active Substance: METHIMAZOLE
     Indication: HYPERTHYROIDISM
     Dosage: 50 MG
     Route: 048
     Dates: start: 20041006, end: 20041105
  48. POTASSIUM CITRATE. [Suspect]
     Active Substance: POTASSIUM CITRATE
     Indication: HYPOKALAEMIA
     Dosage: 1 DF, QD
     Route: 048
     Dates: start: 20041015, end: 20041020
  49. RED BLOOD CELLS, CONCENTRATED [Concomitant]
     Active Substance: HUMAN RED BLOOD CELL
     Indication: HAEMOGLOBIN DECREASED
     Dosage: UNK UNK,QD
     Route: 042
     Dates: start: 20041004, end: 20041031
  50. KALINOR [POTASSIUM CHLORIDE] [Concomitant]
     Indication: HYPOKALAEMIA
     Dosage: DOSE AS USED: 1?1?1, 1?1?2, 2?2?2
     Route: 048
     Dates: start: 20041025, end: 20041027
  51. DIPIPERON [Concomitant]
     Active Substance: PIPAMPERONE
     Indication: CONFUSIONAL STATE
     Dosage: 48 MG,QD
     Route: 048
     Dates: start: 20041103, end: 20041104
  52. DIGITOXIN [Concomitant]
     Active Substance: DIGITOXIN
     Indication: CARDIAC FAILURE
     Dosage: UNK UNK,QD
     Route: 042
     Dates: start: 20041106, end: 20041108
  53. MORPHINE [Concomitant]
     Active Substance: MORPHINE
     Indication: PAIN
     Dosage: UNK UNK,BID
     Route: 042
     Dates: start: 20041106, end: 20041109
  54. DELIX (RAMIPRIL) [Suspect]
     Active Substance: RAMIPRIL
     Indication: HYPERTENSION
     Dosage: 5 DF,QD
     Route: 048
     Dates: start: 20041101, end: 20041102
  55. THIAMAZOLE [Suspect]
     Active Substance: METHIMAZOLE
     Indication: HYPERTHYROIDISM
     Dosage: 50 MG,UNK
     Route: 048
     Dates: start: 20041006, end: 20041105
  56. METOCLOPRAMIDE HYDROCHLORIDE. [Suspect]
     Active Substance: METOCLOPRAMIDE HYDROCHLORIDE
     Dosage: 20 DF,5ID
     Route: 048
     Dates: start: 20041025, end: 20041028
  57. HYDROCHLOROTHIAZIDE. [Suspect]
     Active Substance: HYDROCHLOROTHIAZIDE
     Indication: HYPERTENSION
     Dosage: 25 MG,QD
     Route: 048
     Dates: start: 20041012, end: 20041031
  58. EUNERPAN [Suspect]
     Active Substance: MELPERONE HYDROCHLORIDE
     Indication: SLEEP DISORDER
     Dosage: 1 ML,QD
     Route: 048
     Dates: start: 20041030, end: 20041031
  59. PARACETAMOL [Concomitant]
     Active Substance: ACETAMINOPHEN
     Indication: PYREXIA
     Dosage: 1 G,1X
     Route: 042
     Dates: start: 20041014, end: 20041014
  60. PARACETAMOL [Concomitant]
     Active Substance: ACETAMINOPHEN
     Dosage: 1 G,1X
     Route: 042
     Dates: start: 20041021, end: 20041021
  61. GLUCOSE [Concomitant]
     Active Substance: DEXTROSE
     Indication: HYPOGLYCAEMIA
     Dosage: UNK UNK,1X
     Route: 042
     Dates: start: 20041102, end: 20041102
  62. FURESIS [Concomitant]
     Active Substance: FUROSEMIDE
     Indication: POLYURIA
     Dosage: 40 MG,QD
     Route: 042
     Dates: start: 20041102
  63. DIFLUCAN [Concomitant]
     Active Substance: FLUCONAZOLE
     Indication: ORAL CANDIDIASIS
     Dosage: UNK UNK,QD
     Route: 042
     Dates: start: 20041106, end: 20041110
  64. ZYRTEC [Concomitant]
     Active Substance: CETIRIZINE HYDROCHLORIDE
     Indication: PRURITUS
     Dosage: 10 MG,BID
     Route: 048
     Dates: start: 20041110, end: 20041110
  65. CLEXANE [Suspect]
     Active Substance: ENOXAPARIN SODIUM
     Indication: THROMBOSIS PROPHYLAXIS
     Dosage: 40 ML,BID
     Route: 058
     Dates: start: 20041011, end: 20041028
  66. DELIX (RAMIPRIL) [Suspect]
     Active Substance: RAMIPRIL
     Indication: ESSENTIAL HYPERTENSION
  67. LANTUS [Suspect]
     Active Substance: INSULIN GLARGINE
     Indication: DIABETES MELLITUS
     Dosage: UNK UNK,QD
     Route: 058
     Dates: start: 20040729, end: 20041110
  68. LORAZEPAM. [Suspect]
     Active Substance: LORAZEPAM
     Indication: SLEEP DISORDER
     Dosage: 1 DF, QD
     Route: 048
     Dates: start: 20041030, end: 20041030
  69. TORASEMIDE [Suspect]
     Active Substance: TORSEMIDE
     Dosage: DOSE AS USED: 1?0?1, 2?0?2, 1?0?0
     Route: 048
     Dates: start: 20041102, end: 20041105
  70. EUNERPAN [Suspect]
     Active Substance: MELPERONE HYDROCHLORIDE
     Dosage: 1 ML,QD
     Route: 048
     Dates: start: 20041102, end: 20041107
  71. ASS STADA [Suspect]
     Active Substance: ASPIRIN
     Indication: THROMBOSIS PROPHYLAXIS
     Dosage: 100 MG,QD
     Route: 048
     Dates: start: 20040729, end: 20041107
  72. TAZOBAC [Concomitant]
     Active Substance: PIPERACILLIN SODIUM\TAZOBACTAM SODIUM
     Indication: PNEUMONIA
     Dosage: 4.5 G,TID
     Route: 042
     Dates: start: 20041007, end: 20041015
  73. METOCLOPRAMIDE. [Concomitant]
     Active Substance: METOCLOPRAMIDE
     Indication: NAUSEA
     Dosage: UNK UNK,QD
     Route: 042
     Dates: start: 20041024, end: 20041025
  74. RAMIPRIL COMP [Concomitant]
     Active Substance: HYDROCHLOROTHIAZIDE\RAMIPRIL
     Indication: HYPERTENSION
     Dosage: UNK UNK,QD
     Route: 048
     Dates: start: 20041101, end: 20041102
  75. METOPROLOL. [Concomitant]
     Active Substance: METOPROLOL
     Indication: HYPERTENSION
     Dosage: 200 MG,QD
     Route: 048
     Dates: start: 20041101, end: 20041107
  76. FERRO?SANOL DUODENAL [Concomitant]
     Active Substance: FERROUS GLYCINE SULFATE
     Indication: FLUID REPLACEMENT
     Dosage: 50 MG,QD
     Route: 048
     Dates: start: 20041103, end: 20041107
  77. FENISTIL [Concomitant]
     Active Substance: DIMETHINDENE
     Indication: PRURITUS
     Dosage: 4 MG,1X
     Route: 042
     Dates: start: 20041105, end: 20051105
  78. POLYSPECTRAN [GRAMICIDIN;NEOMYCIN SULFATE;POLYMYXIN B SULFATE] [Concomitant]

REACTIONS (13)
  - Pruritus [Fatal]
  - Swollen tongue [Fatal]
  - Skin reaction [Fatal]
  - Oral disorder [Fatal]
  - Stevens-Johnson syndrome [Fatal]
  - Blister [Fatal]
  - Purpura [Fatal]
  - Conjunctivitis [Fatal]
  - Lip erosion [Fatal]
  - Mouth ulceration [Fatal]
  - Ocular hyperaemia [Fatal]
  - Ocular hyperaemia [Fatal]
  - Nikolsky^s sign [Fatal]

NARRATIVE: CASE EVENT DATE: 20041104
